FAERS Safety Report 6232302-0 (Version None)
Quarter: 2009Q2

REPORT INFORMATION
  Report Type: 
  Country: None (occurrence: None)
  Receive Date: 20090617
  Receipt Date: 20090609
  Transmission Date: 20091009
  Serious: Yes (Death)
  Sender: FDA-Public Use
  Company Number: IT-ORACLE-2009S1000229

PATIENT
  Age: 49 Year
  Sex: Female

DRUGS (2)
  1. CUBICIN [Suspect]
     Indication: SEPSIS
  2. CUBICIN [Suspect]
     Indication: DEVICE RELATED INFECTION

REACTIONS (1)
  - DEATH [None]
